FAERS Safety Report 24770010 (Version 6)
Quarter: 2025Q1

REPORT INFORMATION
  Report Type: Spontaneous
  Country: JP (occurrence: JP)
  Receive Date: 20241224
  Receipt Date: 20250210
  Transmission Date: 20250409
  Serious: Yes (Death, Hospitalization, Other)
  Sender: ABBVIE
  Company Number: JP-ABBVIE-6053757

PATIENT
  Age: 68 Year
  Sex: Female

DRUGS (3)
  1. RINVOQ [Suspect]
     Active Substance: UPADACITINIB
     Indication: Rheumatoid arthritis
     Dosage: FORM STRENGTH:15 MILLIGRAM
     Route: 048
     Dates: start: 20240910
  2. METHOTREXATE [Concomitant]
     Active Substance: METHOTREXATE
     Indication: Rheumatoid arthritis
  3. MINODRONIC ACID [Concomitant]
     Active Substance: MINODRONIC ACID
     Indication: Osteoporosis
     Route: 048
     Dates: start: 20170725

REACTIONS (11)
  - Hepatic steatosis [Fatal]
  - Acute hepatic failure [Fatal]
  - Coagulopathy [Unknown]
  - Altered state of consciousness [Unknown]
  - Hepatic encephalopathy [Unknown]
  - Coma [Unknown]
  - Respiratory disorder [Unknown]
  - Blood pressure decreased [Unknown]
  - Communication disorder [Unknown]
  - Abdominal pain upper [Unknown]
  - Hepatitis B reactivation [Fatal]

NARRATIVE: CASE EVENT DATE: 20241201
